FAERS Safety Report 14790919 (Version 3)
Quarter: 2018Q2

REPORT INFORMATION
  Report Type: Spontaneous
  Country: SK (occurrence: SK)
  Receive Date: 20180423
  Receipt Date: 20180619
  Transmission Date: 20180711
  Serious: Yes (Death, Hospitalization, Other)
  Sender: FDA-Public Use
  Company Number: SK-SA-2018SA038792

PATIENT
  Age: 11 Year
  Sex: Male

DRUGS (7)
  1. LINEZOLID. [Suspect]
     Active Substance: LINEZOLID
     Indication: WOUND DEHISCENCE
     Dosage: UNK UNK, UNK
  2. VANCOMYCIN [Suspect]
     Active Substance: VANCOMYCIN
     Indication: BRAIN ABSCESS
     Dosage: UNK UNK,UNK
     Route: 065
  3. ACICLOVIR [Concomitant]
     Active Substance: ACYCLOVIR
     Indication: PLEOCYTOSIS
     Dosage: UNK UNK,UNK
     Route: 065
  4. CEFOTAXIME SODIUM [Suspect]
     Active Substance: CEFOTAXIME SODIUM
     Indication: BRAIN ABSCESS
     Dosage: UNK UNK,UNK
     Route: 065
  5. METRONIDAZOLE. [Suspect]
     Active Substance: METRONIDAZOLE
     Indication: BRAIN ABSCESS
     Dosage: UNK UNK,UNK
     Route: 065
  6. CEFOTAXIME SODIUM [Suspect]
     Active Substance: CEFOTAXIME SODIUM
     Indication: PLEOCYTOSIS
     Dosage: UNK UNK,UNK
     Route: 065
  7. MEROPENEM. [Suspect]
     Active Substance: MEROPENEM
     Indication: WOUND DEHISCENCE
     Dosage: UNK UNK, UNK

REACTIONS (11)
  - Cerebrospinal fluid leakage [Unknown]
  - CNS ventriculitis [Not Recovered/Not Resolved]
  - Wound dehiscence [Unknown]
  - Pulmonary embolism [Not Recovered/Not Resolved]
  - Metastases to meninges [Not Recovered/Not Resolved]
  - Condition aggravated [Not Recovered/Not Resolved]
  - Therapeutic response decreased [Unknown]
  - Brain oedema [Unknown]
  - Drug ineffective [Not Recovered/Not Resolved]
  - Intracranial pressure increased [Unknown]
  - Cardiac failure [Fatal]
